FAERS Safety Report 20892769 (Version 2)
Quarter: 2025Q1

REPORT INFORMATION
  Report Type: Report from Study
  Country: US (occurrence: US)
  Receive Date: 20220531
  Receipt Date: 20250213
  Transmission Date: 20250408
  Serious: No
  Sender: KYOWA
  Company Number: US-KYOWAKIRIN-2022BKK007938

PATIENT

DRUGS (3)
  1. BUROSUMAB [Suspect]
     Active Substance: BUROSUMAB
     Indication: Hereditary hypophosphataemic rickets
     Dosage: UNK, 1X/4 WEEKS
     Route: 065
     Dates: start: 20210702
  2. BUROSUMAB [Suspect]
     Active Substance: BUROSUMAB
     Indication: Hereditary hypophosphataemic rickets
     Dosage: 4 ML (80 MG) UNDER THE SKIN
     Route: 058
  3. BUROSUMAB [Suspect]
     Active Substance: BUROSUMAB
     Route: 058

REACTIONS (2)
  - Hypoacusis [Unknown]
  - Incorrect dose administered [Unknown]
